FAERS Safety Report 15246042 (Version 2)
Quarter: 2019Q2

REPORT INFORMATION
  Report Type: Report from Study
  Country: US (occurrence: CA)
  Receive Date: 20180806
  Receipt Date: 20190509
  Transmission Date: 20190711
  Serious: Yes (Other)
  Sender: FDA-Public Use
  Company Number: PHEH2018US031382

PATIENT
  Sex: Female
  Weight: 72.12 kg

DRUGS (6)
  1. BETADERM [Suspect]
     Active Substance: BETAMETHASONE VALERATE
     Indication: PRODUCT USED FOR UNKNOWN INDICATION
     Route: 065
  2. CANNABIDIOL [Suspect]
     Active Substance: CANNABIDIOL
     Indication: BACK PAIN
  3. ALEVE [Suspect]
     Active Substance: NAPROXEN SODIUM
     Indication: DACTYLITIS
     Dosage: 220 MG, UNK
     Route: 065
     Dates: start: 20180704
  4. PREDNISONE. [Concomitant]
     Active Substance: PREDNISONE
     Indication: URTICARIA
     Dosage: 50 MG, QD
     Route: 048
  5. COSENTYX [Suspect]
     Active Substance: SECUKINUMAB
     Indication: PSORIASIS
     Dosage: 300MG, QW
     Route: 065
     Dates: start: 20180706, end: 20180719
  6. CANNABIDIOL [Suspect]
     Active Substance: CANNABIDIOL
     Indication: FIBROMYALGIA
     Dosage: 0.7 MG, UNK
     Route: 065
     Dates: start: 20180523

REACTIONS (4)
  - Rash [Recovered/Resolved]
  - Drug hypersensitivity [Recovered/Resolved]
  - Swollen tongue [Recovered/Resolved]
  - Urticaria [Recovered/Resolved]

NARRATIVE: CASE EVENT DATE: 20180719
